FAERS Safety Report 24997759 (Version 2)
Quarter: 2025Q1

REPORT INFORMATION
  Report Type: Spontaneous
  Country: FR (occurrence: FR)
  Receive Date: 20250222
  Receipt Date: 20250307
  Transmission Date: 20250409
  Serious: Yes (Other)
  Sender: AUROBINDO
  Company Number: FR-AMGEN-FRASP2025019106

PATIENT
  Age: 13 Year
  Sex: Female

DRUGS (2)
  1. CINACALCET [Suspect]
     Active Substance: CINACALCET
     Indication: Parathyroid tumour benign
     Route: 065
  2. CINACALCET [Suspect]
     Active Substance: CINACALCET
     Indication: Pineal neoplasm

REACTIONS (17)
  - Insulinoma [Unknown]
  - Biliary fistula [Unknown]
  - Pancreatic fistula [Unknown]
  - Hypovolaemic shock [Unknown]
  - Portal vein thrombosis [Unknown]
  - Pancreatic neuroendocrine tumour metastatic [Unknown]
  - Thrombocytopenia [Unknown]
  - Portal hypertension [Unknown]
  - Rathke^s cleft cyst [Unknown]
  - Adrenal mass [Unknown]
  - Benign pancreatic neoplasm [Unknown]
  - Malnutrition [Unknown]
  - Gastrointestinal disorder [Unknown]
  - Hypersplenism [Unknown]
  - Splenomegaly [Unknown]
  - Hyperparathyroidism [Unknown]
  - Lipoma [Unknown]
